FAERS Safety Report 6521007-4 (Version None)
Quarter: 2009Q4

REPORT INFORMATION
  Report Type: 
  Country: None (occurrence: None)
  Receive Date: 20091229
  Receipt Date: 20091228
  Transmission Date: 20100525
  Serious: Yes (Other)
  Sender: FDA-Public Use
  Company Number: SE-AMGEN-UK369729

PATIENT
  Age: 32 Year
  Sex: Female

DRUGS (4)
  1. NPLATE [Suspect]
     Route: 050
     Dates: start: 20090611
  2. PREDNISOLONE [Concomitant]
     Route: 050
  3. AZATIOPRIN [Concomitant]
     Route: 050
  4. PARACETAMOL [Concomitant]
     Route: 050

REACTIONS (1)
  - ABORTION SPONTANEOUS [None]
